FAERS Safety Report 8210217-6 (Version None)
Quarter: 2012Q1

REPORT INFORMATION
  Report Type: 
  Country: None (occurrence: None)
  Receive Date: 20120314
  Receipt Date: 20120301
  Transmission Date: 20120608
  Serious: Yes (Other)
  Sender: FDA-Public Use
  Company Number: ZA-ROCHE-1047436

PATIENT
  Sex: Female

DRUGS (2)
  1. LUCENTIS [Suspect]
     Indication: PRODUCT USED FOR UNKNOWN INDICATION
     Route: 050
  2. XALATAN [Concomitant]

REACTIONS (10)
  - MUSCULOSKELETAL PAIN [None]
  - DEPRESSION [None]
  - PAIN IN EXTREMITY [None]
  - ALOPECIA [None]
  - MYALGIA [None]
  - INFLUENZA LIKE ILLNESS [None]
  - LETHARGY [None]
  - NECK PAIN [None]
  - RETINAL OEDEMA [None]
  - FATIGUE [None]
